FAERS Safety Report 5706620-6 (Version None)
Quarter: 2008Q2

REPORT INFORMATION
  Report Type: 
  Country: None (occurrence: None)
  Receive Date: 20080414
  Receipt Date: 20000630
  Transmission Date: 20081010
  Serious: Yes (Death)
  Sender: FDA-Public Use
  Company Number: 2004IC000189

PATIENT
  Age: 76 Year
  Sex: Female

DRUGS (14)
  1. ANCOTIL (FLUCYTOSINE) [Suspect]
     Indication: FUNGAL INFECTION
     Dosage: SEE IMAGE
     Route: 042
     Dates: start: 20000501
  2. ANCOTIL (FLUCYTOSINE) [Suspect]
     Indication: FUNGAL INFECTION
     Dosage: SEE IMAGE
     Route: 042
     Dates: start: 20000502
  3. ANCOTIL (FLUCYTOSINE) [Suspect]
     Indication: FUNGAL INFECTION
     Dosage: SEE IMAGE
     Route: 042
     Dates: start: 20000503
  4. ANCOTIL (FLUCYTOSINE) [Suspect]
     Indication: FUNGAL INFECTION
     Dosage: SEE IMAGE
     Route: 042
     Dates: start: 20000504
  5. ANCOTIL (FLUCYTOSINE) [Suspect]
     Indication: FUNGAL INFECTION
     Dosage: SEE IMAGE
     Route: 042
     Dates: start: 20000505
  6. ANCOTIL (FLUCYTOSINE) [Suspect]
     Indication: FUNGAL INFECTION
     Dosage: SEE IMAGE
     Route: 042
     Dates: start: 20000506
  7. ANCOTIL (FLUCYTOSINE) [Suspect]
     Indication: FUNGAL INFECTION
     Dosage: SEE IMAGE
     Route: 042
     Dates: start: 20000507
  8. ANCOTIL (FLUCYTOSINE) [Suspect]
     Indication: FUNGAL INFECTION
     Dosage: SEE IMAGE
     Route: 042
     Dates: start: 20000508
  9. ANCOTIL (FLUCYTOSINE) [Suspect]
     Indication: FUNGAL INFECTION
     Dosage: SEE IMAGE
     Route: 042
     Dates: start: 20000509
  10. ANCOTIL (FLUCYTOSINE) [Suspect]
     Indication: FUNGAL INFECTION
     Dosage: SEE IMAGE
     Route: 042
     Dates: start: 20000510
  11. ANCOTIL (FLUCYTOSINE) [Suspect]
     Indication: FUNGAL INFECTION
     Dosage: SEE IMAGE
     Route: 042
     Dates: start: 20000511
  12. ANCOTIL (FLUCYTOSINE) [Suspect]
     Indication: FUNGAL INFECTION
     Dosage: SEE IMAGE
     Route: 042
     Dates: start: 20000512
  13. AMPHOTERICIN B [Concomitant]
  14. AMPHOTERICIN B [Concomitant]

REACTIONS (1)
  - ARRHYTHMIA [None]
